FAERS Safety Report 7383272-3 (Version None)
Quarter: 2011Q1

REPORT INFORMATION
  Report Type: 
  Country: None (occurrence: None)
  Receive Date: 20110330
  Receipt Date: 20110325
  Transmission Date: 20110831
  Serious: Yes (Death)
  Sender: FDA-Public Use
  Company Number: PHHY2011US24867

PATIENT
  Sex: Female
  Weight: 64 kg

DRUGS (1)
  1. EXJADE [Suspect]
     Indication: NEOPLASM
     Dosage: 1250 MG, QD
     Route: 048
     Dates: start: 20100716

REACTIONS (1)
  - DEATH [None]
